FAERS Safety Report 23849025 (Version 1)
Quarter: 2024Q2

REPORT INFORMATION
  Report Type: Spontaneous
  Country: US (occurrence: None)
  Receive Date: 20240511
  Receipt Date: 20240511
  Transmission Date: 20240716
  Serious: Yes (Death, Hospitalization)
  Sender: FDA-Public Use
  Company Number: None

PATIENT
  Age: 75 Year
  Sex: Male
  Weight: 118 kg

DRUGS (1)
  1. PIPERACILLIN SODIUM\TAZOBACTAM SODIUM [Suspect]
     Active Substance: PIPERACILLIN SODIUM\TAZOBACTAM SODIUM
     Indication: Upper respiratory tract infection
     Dosage: OTHER STRENGTH : 0.5 MG/100ML;?
     Dates: start: 20220203, end: 20220212

REACTIONS (5)
  - Thrombocytopenia [None]
  - Influenza [None]
  - Respiratory failure [None]
  - Acute respiratory distress syndrome [None]
  - Therapy cessation [None]

NARRATIVE: CASE EVENT DATE: 20220213
